FAERS Safety Report 5704558-1 (Version None)
Quarter: 2008Q2

REPORT INFORMATION
  Report Type: 
  Country: None (occurrence: None)
  Receive Date: 20080409
  Receipt Date: 20080401
  Transmission Date: 20081010
  Serious: Yes (Death, Other)
  Sender: FDA-Public Use
  Company Number: 2008JP001115

PATIENT
  Age: 41 Year
  Sex: Female
  Weight: 48 kg

DRUGS (29)
  1. PROGRAF [Suspect]
     Indication: CORD BLOOD TRANSPLANT THERAPY
     Dosage: SEE IMAGE
     Route: 042
     Dates: start: 20050810, end: 20050811
  2. PROGRAF [Suspect]
     Indication: CORD BLOOD TRANSPLANT THERAPY
     Dosage: SEE IMAGE
     Route: 042
     Dates: start: 20050812, end: 20050813
  3. PROGRAF [Suspect]
     Indication: CORD BLOOD TRANSPLANT THERAPY
     Dosage: SEE IMAGE
     Route: 042
     Dates: start: 20050814, end: 20050816
  4. PROGRAF [Suspect]
     Indication: CORD BLOOD TRANSPLANT THERAPY
     Dosage: SEE IMAGE
     Route: 042
     Dates: start: 20050817, end: 20050821
  5. PROGRAF [Suspect]
     Indication: CORD BLOOD TRANSPLANT THERAPY
     Dosage: SEE IMAGE
     Route: 042
     Dates: start: 20050822, end: 20050901
  6. FLUDARA [Concomitant]
  7. PREDNISOLONE [Concomitant]
  8. SOLU-MEDROL [Concomitant]
  9. PREDNISOLONE [Concomitant]
  10. ALKERAN [Concomitant]
  11. LEVOFLOXACIN [Concomitant]
  12. DIFLUCAN (FLUCONAZOLE) CAPSULE [Concomitant]
  13. ASTRIC (ACICLOVIR) DRY SYRUP [Concomitant]
  14. URSO (URSODEOXYCHOLIC ACID) TABLET [Concomitant]
  15. TAKEPRON (LANSOPRAZOLE) ORODISPERSIBLE CR TABLET [Concomitant]
  16. NORVASC [Concomitant]
  17. MAXIPIME [Concomitant]
  18. FOSCAVIR [Concomitant]
  19. NEUPOGEN [Concomitant]
  20. OMEPRAL INJECTION [Concomitant]
  21. ACICLOVIR (ACICLOVIR) INJECTION [Concomitant]
  22. PRODIF INJECTION [Concomitant]
  23. SILECE (FLUNITRAZEPAM) INJECTION [Concomitant]
  24. VENILON (IMMUNOGLOBULIN HUMAN NORMAL) INJECTION [Concomitant]
  25. PENTAGIN (PENTAZOCINE) INJECTION [Concomitant]
  26. BUSCOPAN (HYOSCINE BUTYLBROMIDE) INJECTION [Concomitant]
  27. ROPION (FLURBIPROFEN AXETIL) INJECTION [Concomitant]
  28. VASOLAN (VERAPAMIL HYDROCHLORIDE) INJECTION [Concomitant]
  29. PERDIPINE (NICARDIPINE HYDROCHLORIDE) INJECTION [Concomitant]

REACTIONS (5)
  - ABDOMINAL PAIN UPPER [None]
  - PAIN [None]
  - PNEUMONIA [None]
  - PRURITUS [None]
  - THROMBOTIC MICROANGIOPATHY [None]
